FAERS Safety Report 12446410 (Version 2)
Quarter: 2016Q3

REPORT INFORMATION
  Report Type: Spontaneous
  Country: US (occurrence: US)
  Receive Date: 20160608
  Receipt Date: 20160701
  Transmission Date: 20161109
  Serious: No
  Sender: FDA-Public Use
  Company Number: US-TAKEDA-2016TUS009375

PATIENT
  Age: 24 Year
  Sex: Female
  Weight: 161 kg

DRUGS (1)
  1. BRINTELLIX [Suspect]
     Active Substance: VORTIOXETINE HYDROBROMIDE
     Indication: DEPRESSION
     Dosage: 20 MG, QD
     Route: 048
     Dates: start: 20160506, end: 20160608

REACTIONS (1)
  - Affect lability [Recovered/Resolved]

NARRATIVE: CASE EVENT DATE: 20160506
